FAERS Safety Report 13123166 (Version 2)
Quarter: 2017Q1

REPORT INFORMATION
  Report Type: Spontaneous
  Country: US (occurrence: US)
  Receive Date: 20170117
  Receipt Date: 20170126
  Transmission Date: 20170428
  Serious: Yes (Other)
  Sender: FDA-Public Use
  Company Number: US-LUNDBECK-DKLU2025192

PATIENT
  Age: 72 Year
  Sex: Male

DRUGS (3)
  1. NORTHERA [Suspect]
     Active Substance: DROXIDOPA
     Route: 048
  2. NORTHERA [Suspect]
     Active Substance: DROXIDOPA
     Route: 065
     Dates: end: 20170106
  3. NORTHERA [Suspect]
     Active Substance: DROXIDOPA
     Indication: HYPOTENSION
     Dosage: TITRATION SCHEDULE B
     Route: 048
     Dates: start: 20161122

REACTIONS (4)
  - Blindness [Recovering/Resolving]
  - Hypertension [Recovering/Resolving]
  - Insomnia [Unknown]
  - Flushing [Unknown]

NARRATIVE: CASE EVENT DATE: 201612
